FAERS Safety Report 9635156 (Version 1)
Quarter: 2013Q4

REPORT INFORMATION
  Report Type: Spontaneous
  Country: US (occurrence: US)
  Receive Date: 20131021
  Receipt Date: 20131021
  Transmission Date: 20140711
  Serious: No
  Sender: FDA-Public Use
  Company Number: US-PURDUE-USA-2013-0102509

PATIENT
  Age: 70 Year
  Sex: Female

DRUGS (6)
  1. BUTRANS [Suspect]
     Indication: BACK PAIN
     Dosage: 10 MCG/HR, WEEKLY
     Route: 062
     Dates: start: 201304
  2. HYDROCHLOROTHIAZIDE [Concomitant]
     Indication: BLOOD PRESSURE
     Dosage: 25 MG, DAILY
     Route: 048
  3. PAROXETINE [Concomitant]
     Indication: ANXIETY
     Dosage: 40 MG, DAILY
     Route: 048
  4. ENALAPRIL [Concomitant]
     Indication: BLOOD PRESSURE
     Dosage: 10 MG, DAILY
     Route: 048
  5. METOPROLOL [Concomitant]
     Indication: BLOOD PRESSURE
     Dosage: 100 MG, DAILY
     Route: 048
  6. AMLODIPINE [Concomitant]
     Indication: BLOOD PRESSURE
     Dosage: 10 MG, DAILY
     Route: 048

REACTIONS (5)
  - Application site discolouration [Not Recovered/Not Resolved]
  - Application site burn [Not Recovered/Not Resolved]
  - Application site rash [Not Recovered/Not Resolved]
  - Application site erythema [Not Recovered/Not Resolved]
  - Application site pruritus [Not Recovered/Not Resolved]
